FAERS Safety Report 9748251 (Version 1)
Quarter: 2013Q4

REPORT INFORMATION
  Report Type: Spontaneous
  Country: GB (occurrence: GB)
  Receive Date: 20131212
  Receipt Date: 20131212
  Transmission Date: 20140711
  Serious: Yes (Hospitalization)
  Sender: FDA-Public Use
  Company Number: GB-JNJFOC-20131204643

PATIENT
  Age: 47 Year
  Sex: Male

DRUGS (3)
  1. RIVAROXABAN [Suspect]
     Indication: KNEE OPERATION
     Route: 048
  2. RIVAROXABAN [Suspect]
     Indication: THROMBOSIS PROPHYLAXIS
     Route: 048
  3. HEPARIN [Concomitant]
     Indication: THROMBOSIS PROPHYLAXIS
     Route: 058

REACTIONS (3)
  - Arthritis infective [Recovered/Resolved]
  - Wound dehiscence [Recovered/Resolved]
  - Wound secretion [Recovered/Resolved]
